FAERS Safety Report 15585487 (Version 1)
Quarter: 2018Q4

REPORT INFORMATION
  Report Type: Report from Study
  Country: KR (occurrence: KR)
  Receive Date: 20181102
  Receipt Date: 20181102
  Transmission Date: 20190205
  Serious: Yes (Hospitalization)
  Sender: FDA-Public Use
  Company Number: KR-AMGEN-KORNI2018129489

PATIENT
  Age: 75 Year
  Sex: Female
  Weight: 42 kg

DRUGS (14)
  1. ADCAL [Concomitant]
     Active Substance: CALCIUM CARBONATE
     Indication: MINERAL SUPPLEMENTATION
     Dosage: 240 MG/240 MG/271.8 MG/100 IU, QD
     Route: 048
     Dates: start: 20180326
  2. MIRTAX [Concomitant]
     Indication: DEPRESSION
     Dosage: 15 MG, QD
     Route: 048
     Dates: start: 20180205
  3. MYTONIN [Concomitant]
     Indication: BLADDER DYSFUNCTION
     Dosage: 50 MG (25 MG/TABELET, 2 TABLETS), QD
     Route: 048
     Dates: start: 20180223
  4. CELEBREX [Concomitant]
     Active Substance: CELECOXIB
     Indication: OSTEOARTHRITIS
     Dosage: 200 MG, QD
     Route: 048
     Dates: start: 20171123
  5. ZANAPAM [Concomitant]
     Indication: DEPRESSION
     Dosage: 0.5 MG, BID
     Route: 048
     Dates: start: 20180122
  6. ESPROLE [Concomitant]
     Indication: CHRONIC GASTRITIS
     Dosage: 20 MG, QD
     Route: 048
     Dates: start: 20171214
  7. DENOSUMAB [Suspect]
     Active Substance: DENOSUMAB
     Indication: OSTEOPOROSIS POSTMENOPAUSAL
     Dosage: 60 MG, Q6MO
     Route: 058
     Dates: start: 20180326
  8. STILLEN 2X [Concomitant]
     Indication: CHRONIC GASTRITIS
     Dosage: 90 MG, BID
     Route: 048
     Dates: start: 20170216
  9. CALCIUM [Concomitant]
     Active Substance: CALCIUM
     Dosage: UNK
  10. ZOLPID [Concomitant]
     Indication: INSOMNIA
     Dosage: 10 MG, QD
     Route: 048
     Dates: start: 20150323
  11. TWYNSTA [Concomitant]
     Active Substance: AMLODIPINE BESYLATE\TELMISARTAN
     Indication: HYPERTENSION
     Dosage: 5/40 MG, QD
     Route: 048
     Dates: start: 20180226
  12. LEXLER [Concomitant]
     Indication: DEPRESSION
     Dosage: 10 MG, QD
     Route: 048
     Dates: start: 20180205
  13. HARNAL [Concomitant]
     Active Substance: TAMSULOSIN HYDROCHLORIDE
     Indication: BLADDER DYSFUNCTION
     Dosage: 0.2 MG, QD
     Route: 048
     Dates: start: 20170208
  14. ZANAPAM [Concomitant]
     Dosage: 0.25 MG, BID
     Route: 048
     Dates: start: 20180326

REACTIONS (1)
  - Enterocolitis infectious [Recovered/Resolved]

NARRATIVE: CASE EVENT DATE: 20180809
